FAERS Safety Report 23246949 (Version 1)
Quarter: 2023Q4

REPORT INFORMATION
  Report Type: Spontaneous
  Country: BE (occurrence: BE)
  Receive Date: 20231130
  Receipt Date: 20231130
  Transmission Date: 20240110
  Serious: Yes (Death)
  Sender: FDA-Public Use
  Company Number: BE-PFIZER INC-PV202300078448

PATIENT
  Age: 44 Year

DRUGS (1)
  1. SUTENT [Suspect]
     Active Substance: SUNITINIB MALATE
     Indication: Clear cell sarcoma of soft tissue
     Dosage: 37.5 MG, CYCLIC (DAILY FOR 3 WEEKS ON, 1 WEEK OFF)

REACTIONS (2)
  - Death [Fatal]
  - Off label use [Unknown]
